FAERS Safety Report 6250908-X (Version None)
Quarter: 2009Q2

REPORT INFORMATION
  Report Type: 
  Country: None (occurrence: None)
  Receive Date: 20090630
  Receipt Date: 20090623
  Transmission Date: 20091009
  Serious: Yes (Death)
  Sender: FDA-Public Use
  Company Number: US-BAYER-200924557NA

PATIENT
  Sex: Male

DRUGS (4)
  1. MAGNEVIST [Suspect]
     Indication: NUCLEAR MAGNETIC RESONANCE IMAGING
     Dates: start: 20021220, end: 20021220
  2. MAGNEVIST [Suspect]
     Dates: start: 20030513, end: 20030513
  3. OMNISCAN [Suspect]
     Indication: NUCLEAR MAGNETIC RESONANCE IMAGING
     Dates: start: 20031201, end: 20031201
  4. OPTIMARK [Suspect]
     Indication: NUCLEAR MAGNETIC RESONANCE IMAGING
     Dates: start: 20040126, end: 20040126

REACTIONS (3)
  - NEPHROGENIC SYSTEMIC FIBROSIS [None]
  - PAIN [None]
  - SKIN FIBROSIS [None]
